FAERS Safety Report 25249208 (Version 1)
Quarter: 2025Q2

REPORT INFORMATION
  Report Type: Spontaneous
  Country: DE (occurrence: DE)
  Receive Date: 20250429
  Receipt Date: 20250429
  Transmission Date: 20250716
  Serious: Yes (Hospitalization, Other)
  Sender: Unknown Manufacturer
  Company Number: DE-862174955-ML2025-01932

PATIENT
  Age: 63 Year
  Sex: Female

DRUGS (2)
  1. CELECOXIB [Suspect]
     Active Substance: CELECOXIB
     Indication: Osteoarthritis
     Dosage: INTAKE: 1 IN THE MORNING, 1 IN THE EVENING FOR 25 DAYS.
     Route: 048
     Dates: start: 20250323, end: 20250415
  2. CELECOXIB [Suspect]
     Active Substance: CELECOXIB
     Indication: Joint prosthesis user

REACTIONS (11)
  - Dyskinesia [Unknown]
  - Hyperhidrosis [Unknown]
  - Chills [Unknown]
  - Circulatory collapse [Unknown]
  - Circulatory collapse [Unknown]
  - Circulatory collapse [Unknown]
  - Vomiting [Unknown]
  - Diarrhoea [Unknown]
  - Headache [Unknown]
  - Dizziness [Unknown]
  - Nausea [Unknown]

NARRATIVE: CASE EVENT DATE: 20250401
